FAERS Safety Report 9000819 (Version 1)
Quarter: 2013Q1

REPORT INFORMATION
  Report Type: Spontaneous
  Country: US (occurrence: None)
  Receive Date: 20130103
  Receipt Date: 20130103
  Transmission Date: 20140127
  Serious: Yes (Hospitalization, Other)
  Sender: FDA-Public Use
  Company Number: None

PATIENT
  Age: 45 Year
  Sex: Female
  Weight: 64.86 kg

DRUGS (1)
  1. PREDNISONE [Suspect]
     Indication: BRONCHITIS
     Dosage: VARIED ONCE A DAY PO
     Dates: start: 20121103, end: 20121209

REACTIONS (3)
  - Anxiety [None]
  - Dyspnoea [None]
  - Panic reaction [None]
